FAERS Safety Report 7440736-1 (Version None)
Quarter: 2011Q2

REPORT INFORMATION
  Report Type: 
  Country: None (occurrence: None)
  Receive Date: 20110427
  Receipt Date: 20110414
  Transmission Date: 20111010
  Serious: Yes (Hospitalization)
  Sender: FDA-Public Use
  Company Number: US-CUBIST-2011S1000207

PATIENT
  Age: 78 Year
  Sex: Male

DRUGS (2)
  1. LINEZOLID [Concomitant]
     Indication: POST PROCEDURAL INFECTION
     Route: 065
     Dates: start: 20100815, end: 20100816
  2. CUBICIN [Suspect]
     Indication: POST PROCEDURAL INFECTION
     Route: 042
     Dates: start: 20100817

REACTIONS (4)
  - EOSINOPHILIA [None]
  - LUNG DISORDER [None]
  - PYREXIA [None]
  - RASH [None]
